FAERS Safety Report 7019279-5 (Version None)
Quarter: 2010Q3

REPORT INFORMATION
  Report Type: 
  Country: None (occurrence: None)
  Receive Date: 20100923
  Receipt Date: 20100908
  Transmission Date: 20110219
  Serious: Yes (Hospitalization)
  Sender: FDA-Public Use
  Company Number: US-ACCORD-006173

PATIENT
  Age: 76 Year
  Sex: Female

DRUGS (3)
  1. PACLITAXEL [Suspect]
     Indication: BREAST CANCER
  2. TRASTUZUMAB (TRASTUZUMAB) [Concomitant]
  3. ATORVASTATIN (ATORVASTATIN) [Concomitant]

REACTIONS (5)
  - ACTIVATED PARTIAL THROMBOPLASTIN TIME PROLONGED [None]
  - BLOOD FIBRINOGEN INCREASED [None]
  - HAEMATURIA [None]
  - HAEMOPHILIA A WITH ANTI FACTOR VIII [None]
  - WHITE BLOOD CELL COUNT INCREASED [None]
